FAERS Safety Report 11132115 (Version 1)
Quarter: 2015Q2

REPORT INFORMATION
  Report Type: Spontaneous
  Country: RU (occurrence: RU)
  Receive Date: 20150522
  Receipt Date: 20150522
  Transmission Date: 20150821
  Serious: Yes (Hospitalization)
  Sender: FDA-Public Use
  Company Number: RU-ASTRAZENECA-2015SE45277

PATIENT
  Age: 12 Year
  Sex: Male

DRUGS (2)
  1. ANTIBACTERIAL THERAPY [Concomitant]
  2. PULMICORT TURBUHALER [Suspect]
     Active Substance: BUDESONIDE
     Indication: VIRAL INFECTION
     Dosage: 0.25-0.5 MG TWO TIMES A DAY
     Route: 055

REACTIONS (2)
  - Condition aggravated [Unknown]
  - Off label use [Unknown]
